FAERS Safety Report 7457118-9 (Version None)
Quarter: 2011Q2

REPORT INFORMATION
  Report Type: 
  Country: None (occurrence: None)
  Receive Date: 20110504
  Receipt Date: 20110421
  Transmission Date: 20111010
  Serious: Yes (Hospitalization, Other)
  Sender: FDA-Public Use
  Company Number: US-ELI_LILLY_AND_COMPANY-US201002005950

PATIENT
  Sex: Female

DRUGS (8)
  1. NEXIUM [Concomitant]
     Indication: GASTROOESOPHAGEAL REFLUX DISEASE
  2. FORTEO [Suspect]
     Indication: OSTEOPOROSIS
     Dosage: 20 UG, QD
     Route: 065
     Dates: start: 20091022
  3. FORTEO [Suspect]
     Dosage: 20 UG, QD
     Route: 065
  4. PROVENTIL                          /00139501/ [Concomitant]
  5. FORTEO [Suspect]
     Dosage: 20 UG, QD
  6. XYZAL [Concomitant]
     Indication: HYPERSENSITIVITY
  7. DIOVAN [Concomitant]
     Indication: BLOOD PRESSURE
  8. FLOVENT [Concomitant]

REACTIONS (11)
  - CYSTITIS [None]
  - ABDOMINAL PAIN [None]
  - DISCOMFORT [None]
  - ARTHRALGIA [None]
  - KNEE ARTHROPLASTY [None]
  - BURSITIS [None]
  - ANAEMIA [None]
  - BALANCE DISORDER [None]
  - FATIGUE [None]
  - ASTHENIA [None]
  - INJECTION SITE HAEMORRHAGE [None]
